FAERS Safety Report 6124039-3 (Version None)
Quarter: 2009Q1

REPORT INFORMATION
  Report Type: 
  Country: None (occurrence: None)
  Receive Date: 20090319
  Receipt Date: 20090309
  Transmission Date: 20090719
  Serious: Yes (Hospitalization)
  Sender: FDA-Public Use
  Company Number: PHHO2008AU06887

PATIENT
  Sex: Male
  Weight: 68 kg

DRUGS (4)
  1. ZOLEDRONIC ACID [Suspect]
     Indication: METASTASES TO BONE
     Dosage: 4 MG, QW4
     Route: 042
     Dates: start: 20070227
  2. VITAMIN D [Concomitant]
     Indication: METASTASES TO BONE
  3. CALCIUM [Concomitant]
     Indication: METASTASES TO BONE
  4. BACTRIM DS [Concomitant]
     Indication: ANTIBIOTIC PROPHYLAXIS
     Dosage: UNK
     Dates: start: 20080218

REACTIONS (4)
  - BONE GRAFT [None]
  - MULTIPLE MYELOMA [None]
  - SPINAL FUSION SURGERY [None]
  - SURGERY [None]
